FAERS Safety Report 8539303-8 (Version None)
Quarter: 2012Q3

REPORT INFORMATION
  Report Type: 
  Country: None (occurrence: None)
  Receive Date: 20120726
  Receipt Date: 20110726
  Transmission Date: 20120928
  Serious: No
  Sender: FDA-Public Use
  Company Number: US-ASTRAZENECA-2011SE44548

PATIENT
  Age: 23 Year
  Sex: Female
  Weight: 90.7 kg

DRUGS (3)
  1. ALPRAZOLAM [Concomitant]
  2. EFFEXOR [Concomitant]
  3. SEROQUEL [Suspect]
     Indication: PSYCHOTIC DISORDER
     Route: 048

REACTIONS (2)
  - DRUG DOSE OMISSION [None]
  - ACTIVITIES OF DAILY LIVING IMPAIRED [None]
